FAERS Safety Report 24626984 (Version 1)
Quarter: 2024Q4

REPORT INFORMATION
  Report Type: Spontaneous
  Country: US (occurrence: US)
  Receive Date: 20241115
  Receipt Date: 20241115
  Transmission Date: 20250114
  Serious: No
  Sender: BIOMARIN
  Company Number: US-BIOMARINAP-US-2024-161814

PATIENT

DRUGS (1)
  1. PALYNZIQ [Suspect]
     Active Substance: PEGVALIASE-PQPZ
     Indication: Product used for unknown indication
     Dosage: UNK
     Route: 058
     Dates: start: 20241101

REACTIONS (7)
  - Rash [Unknown]
  - Rash erythematous [Unknown]
  - Injection site discolouration [Unknown]
  - Urticaria [Unknown]
  - Injection site discomfort [Unknown]
  - Injection site pruritus [Unknown]
  - Injection site warmth [Unknown]

NARRATIVE: CASE EVENT DATE: 20241110
